FAERS Safety Report 22254337 (Version 1)
Quarter: 2023Q2

REPORT INFORMATION
  Report Type: Spontaneous
  Country: US (occurrence: None)
  Receive Date: 20230425
  Receipt Date: 20230425
  Transmission Date: 20230722
  Serious: Yes (Hospitalization)
  Sender: FDA-Public Use
  Company Number: None

PATIENT
  Age: 70 Year
  Sex: Female
  Weight: 80.2 kg

DRUGS (1)
  1. JARDIANCE [Suspect]
     Active Substance: EMPAGLIFLOZIN
     Indication: Diabetes mellitus
     Dosage: FREQUENCY : DAILY;?
     Dates: start: 20220418, end: 20230228

REACTIONS (7)
  - Dyspnoea [None]
  - Cough [None]
  - Nausea [None]
  - Vomiting [None]
  - Euglycaemic diabetic ketoacidosis [None]
  - Acute respiratory failure [None]
  - SARS-CoV-2 test positive [None]

NARRATIVE: CASE EVENT DATE: 20230228
